FAERS Safety Report 8224541-4 (Version None)
Quarter: 2012Q1

REPORT INFORMATION
  Report Type: 
  Country: None (occurrence: None)
  Receive Date: 20120321
  Receipt Date: 20120314
  Transmission Date: 20120608
  Serious: No
  Sender: FDA-Public Use
  Company Number: US-PFIZER INC-2012068465

PATIENT

DRUGS (1)
  1. LYRICA [Suspect]
     Dosage: UNK

REACTIONS (7)
  - PAIN [None]
  - DEPRESSION [None]
  - NECK PAIN [None]
  - MUSCULOSKELETAL STIFFNESS [None]
  - ACTIVITIES OF DAILY LIVING IMPAIRED [None]
  - FEELING ABNORMAL [None]
  - FRUSTRATION [None]
